FAERS Safety Report 20032017 (Version 1)
Quarter: 2021Q4

REPORT INFORMATION
  Report Type: Spontaneous
  Country: US (occurrence: US)
  Receive Date: 20211103
  Receipt Date: 20211103
  Transmission Date: 20220303
  Serious: No
  Sender: FDA-Public Use
  Company Number: US-ALLERGAN-2108623US

PATIENT
  Sex: Female

DRUGS (2)
  1. VRAYLAR [Suspect]
     Active Substance: CARIPRAZINE
     Indication: Depression
     Dosage: UNK UNK, QD
  2. SERTRALINE [Concomitant]
     Active Substance: SERTRALINE HYDROCHLORIDE

REACTIONS (1)
  - Off label use [Unknown]
